FAERS Safety Report 25543727 (Version 3)
Quarter: 2025Q3

REPORT INFORMATION
  Report Type: Spontaneous
  Country: MY (occurrence: MY)
  Receive Date: 20250711
  Receipt Date: 20250808
  Transmission Date: 20251021
  Serious: Yes (Other)
  Sender: AUROBINDO
  Company Number: MY-MLMSERVICE-20250626-PI556098-00057-1

PATIENT
  Age: 70 Year
  Sex: Female
  Weight: 155 kg

DRUGS (2)
  1. SIMVASTATIN [Suspect]
     Active Substance: SIMVASTATIN
     Indication: Dyslipidaemia
     Route: 065
     Dates: start: 202308, end: 202312
  2. ATORVASTATIN [Suspect]
     Active Substance: ATORVASTATIN
     Indication: Dyslipidaemia
     Route: 065
     Dates: start: 202301, end: 20230404

REACTIONS (5)
  - Primary biliary cholangitis [Recovered/Resolved]
  - Autoimmune hepatitis [Recovered/Resolved]
  - Unmasking of previously unidentified disease [Recovered/Resolved]
  - Overlap syndrome [Recovered/Resolved]
  - Condition aggravated [Recovered/Resolved]

NARRATIVE: CASE EVENT DATE: 20230201
